FAERS Safety Report 12119882 (Version 2)
Quarter: 2016Q2

REPORT INFORMATION
  Report Type: Report from Study
  Country: US (occurrence: US)
  Receive Date: 20160226
  Receipt Date: 20160408
  Transmission Date: 20160815
  Serious: Yes (Hospitalization)
  Sender: FDA-Public Use
  Company Number: US-PFIZER INC-2016098742

PATIENT
  Age: 70 Year
  Sex: Male
  Weight: 110 kg

DRUGS (15)
  1. FESOTERODINE [Concomitant]
     Active Substance: FESOTERODINE
     Indication: POLLAKIURIA
     Dosage: 8 MG, 1X/DAY
     Route: 048
     Dates: start: 201408
  2. ATIVAN [Concomitant]
     Active Substance: LORAZEPAM
     Indication: ANXIETY
     Dosage: 0.5 MG, PRN
     Route: 048
     Dates: start: 2014
  3. FENOFIBRATE. [Concomitant]
     Active Substance: FENOFIBRATE
     Indication: HYPERLIPIDAEMIA
     Dosage: 160 MG, 1X/DAY
     Route: 048
     Dates: start: 201408
  4. FOSAMAX [Concomitant]
     Active Substance: ALENDRONATE SODIUM
     Indication: BONE LOSS
     Dosage: 70 MG, WEEKLY
     Route: 048
     Dates: start: 2015
  5. CRIZOTINIB [Suspect]
     Active Substance: CRIZOTINIB
     Indication: PROSTATE CANCER
     Dosage: UNK UNK, 2X/DAY
     Route: 048
  6. SPORANOX [Suspect]
     Active Substance: ITRACONAZOLE
     Dosage: UNK, ONCE DAILY
     Route: 048
  7. ALENDRONATE SODIUM. [Concomitant]
     Active Substance: ALENDRONATE SODIUM
     Indication: METASTASES TO BONE
     Dosage: 70 MG, WEEKLY
     Route: 048
     Dates: start: 201408
  8. NEUTRA-PHOS [Concomitant]
     Active Substance: POTASSIUM PHOSPHATE, DIBASIC\POTASSIUM PHOSPHATE, MONOBASIC\SODIUM PHOSPHATE, DIBASIC\SODIUM PHOSPHATE, MONOBASIC
     Indication: BLOOD PHOSPHORUS DECREASED
     Dosage: 250 MG, 2X/DAY
     Route: 048
     Dates: start: 201602
  9. OXYCODONE [Concomitant]
     Active Substance: OXYCODONE
     Indication: PAIN
     Dosage: 5/325 MG,, AS NEEDED
     Route: 048
     Dates: start: 201408
  10. MARINOL [Concomitant]
     Active Substance: DRONABINOL
     Indication: DECREASED APPETITE
     Dosage: 2.5 MG, FREQUENCY WAS BIS, IND
     Route: 048
     Dates: start: 201602
  11. OMEPRAZOLE. [Concomitant]
     Active Substance: OMEPRAZOLE
     Indication: GASTROOESOPHAGEAL REFLUX DISEASE
     Dosage: 20 MG, 1X/DAY
     Route: 048
     Dates: start: 2007, end: 20160210
  12. VITAMIN B12 [Concomitant]
     Active Substance: CYANOCOBALAMIN
     Indication: SUPPLEMENTATION THERAPY
     Dosage: 1 DF, 1X/DAY
     Route: 048
     Dates: start: 2012
  13. MIRTAZAPINE. [Concomitant]
     Active Substance: MIRTAZAPINE
     Indication: DEPRESSION
     Dosage: 15 MG, UNK
     Route: 048
     Dates: start: 2015
  14. ZOFRAN [Concomitant]
     Active Substance: ONDANSETRON HYDROCHLORIDE
     Indication: NAUSEA
     Dosage: 8 MG, AS NEEDED
     Route: 048
     Dates: start: 2014
  15. SIMVASTATIN. [Concomitant]
     Active Substance: SIMVASTATIN
     Indication: HYPERLIPIDAEMIA
     Dosage: 20 MG, 1X/DAY
     Route: 048
     Dates: start: 2007, end: 20160210

REACTIONS (1)
  - Upper limb fracture [Recovered/Resolved]

NARRATIVE: CASE EVENT DATE: 20160214
